FAERS Safety Report 24603557 (Version 1)
Quarter: 2024Q4

REPORT INFORMATION
  Report Type: Spontaneous
  Country: AU (occurrence: AU)
  Receive Date: 20241111
  Receipt Date: 20241111
  Transmission Date: 20250114
  Serious: Yes (Other)
  Sender: ADVANZ PHARMA
  Company Number: AU-ADVANZ PHARMA-202411009097

PATIENT

DRUGS (4)
  1. ZONISAMIDE [Suspect]
     Active Substance: ZONISAMIDE
     Dosage: UNK
  2. CLONAZEPAM [Suspect]
     Active Substance: CLONAZEPAM
     Dosage: UNK
  3. LACOSAMIDE [Suspect]
     Active Substance: LACOSAMIDE
     Dosage: UNK
  4. LEVETIRACETAM [Suspect]
     Active Substance: LEVETIRACETAM
     Dosage: UNK

REACTIONS (3)
  - Tuberous sclerosis complex [Unknown]
  - Cytogenetic abnormality [Unknown]
  - Foetal exposure during pregnancy [Unknown]
